FAERS Safety Report 9476139 (Version 1)
Quarter: 2013Q3

REPORT INFORMATION
  Report Type: Spontaneous
  Country: US (occurrence: None)
  Receive Date: 20130823
  Receipt Date: 20130823
  Transmission Date: 20140515
  Serious: Yes (Other)
  Sender: FDA-Public Use
  Company Number: None

PATIENT
  Age: 10 Year
  Sex: Male

DRUGS (2)
  1. IMOVAX RABIES [Suspect]
     Dates: start: 20110810
  2. IMOGAM RABIES-HT [Suspect]
     Dates: start: 20110810

REACTIONS (6)
  - Influenza like illness [None]
  - Headache [None]
  - Fatigue [None]
  - Malaise [None]
  - Nausea [None]
  - Pyrexia [None]
